FAERS Safety Report 5615140-9 (Version None)
Quarter: 2008Q1

REPORT INFORMATION
  Report Type: 
  Country: None (occurrence: None)
  Receive Date: 20080206
  Receipt Date: 20070718
  Transmission Date: 20080703
  Serious: No
  Sender: FDA-Public Use
  Company Number: A0664830A

PATIENT
  Age: 46 Year
  Sex: Male

DRUGS (4)
  1. ARIXTRA [Suspect]
     Dosage: 2.5MG PER DAY
     Route: 058
     Dates: start: 20070711
  2. DOXYCYCLINE [Concomitant]
  3. TYLENOL [Concomitant]
  4. LORTAB [Concomitant]

REACTIONS (6)
  - ASTHENIA [None]
  - DYSPNOEA [None]
  - EYE IRRITATION [None]
  - NASAL DISCOMFORT [None]
  - PYREXIA [None]
  - SENSORY DISTURBANCE [None]
